FAERS Safety Report 7717243-1 (Version None)
Quarter: 2011Q3

REPORT INFORMATION
  Report Type: 
  Country: None (occurrence: None)
  Receive Date: 20110826
  Receipt Date: 20110826
  Transmission Date: 20111222
  Serious: No
  Sender: FDA-Public Use
  Company Number: None

PATIENT
  Sex: Female

DRUGS (1)
  1. ENBREL [Suspect]
     Dosage: 50 MG QW SQ
     Route: 058
     Dates: start: 20110310, end: 20110606

REACTIONS (4)
  - EYE MOVEMENT DISORDER [None]
  - DIZZINESS [None]
  - BALANCE DISORDER [None]
  - VISUAL ACUITY REDUCED [None]
